FAERS Safety Report 5237224-X (Version None)
Quarter: 2007Q1

REPORT INFORMATION
  Report Type: 
  Country: None (occurrence: None)
  Receive Date: 20061208
  Receipt Date: 20050524
  Transmission Date: 20070707
  Serious: Yes (Other)
  Sender: FDA-Public Use
  Company Number: 2005UW08049

PATIENT
  Age: 73 Year
  Sex: Female
  Weight: 61.234 kg

DRUGS (2)
  1. CRESTOR [Suspect]
     Indication: BLOOD CHOLESTEROL INCREASED
     Dosage: 5 MG PO
     Route: 048
  2. ELAVIL [Concomitant]

REACTIONS (4)
  - INCREASED TENDENCY TO BRUISE [None]
  - MUSCLE ATROPHY [None]
  - SKIN ATROPHY [None]
  - WEIGHT DECREASED [None]
